FAERS Safety Report 5033687-3 (Version None)
Quarter: 2006Q2

REPORT INFORMATION
  Report Type: 
  Country: None (occurrence: None)
  Receive Date: 20060623
  Receipt Date: 20060614
  Transmission Date: 20061013
  Serious: Yes (Hospitalization)
  Sender: FDA-Public Use
  Company Number: FR-GLAXOSMITHKLINE-B0428394A

PATIENT
  Age: 70 Year
  Sex: Female
  Weight: 45 kg

DRUGS (11)
  1. DEROXAT [Suspect]
     Indication: ANXIETY
     Dosage: 20MG PER DAY
     Route: 048
     Dates: start: 20060301, end: 20060402
  2. DEROXAT [Suspect]
     Indication: DEPRESSION
     Dosage: 20MG PER DAY
     Route: 048
     Dates: start: 20060301, end: 20060402
  3. NISISCO [Concomitant]
     Dosage: 1UNIT PER DAY
     Route: 048
     Dates: start: 20060201
  4. OPTRUMA [Concomitant]
     Dosage: 1UNIT PER DAY
     Route: 048
  5. TENORMIN [Concomitant]
     Dosage: 100MG PER DAY
     Route: 048
  6. ENDOTELON [Concomitant]
     Dosage: 300MG PER DAY
     Route: 048
  7. TANAKAN [Concomitant]
     Dosage: 120MG PER DAY
     Route: 048
  8. TANGANIL [Concomitant]
     Dosage: 3UNIT PER DAY
  9. OROCAL [Concomitant]
     Dosage: 1UNIT PER DAY
  10. LEXOMIL [Concomitant]
     Dosage: .25UNIT PER DAY
  11. COZAAR [Concomitant]
     Dates: end: 20060201

REACTIONS (25)
  - AMNESIA [None]
  - BITE [None]
  - BLOOD CREATINE PHOSPHOKINASE INCREASED [None]
  - BLOOD CREATININE DECREASED [None]
  - BRADYPHRENIA [None]
  - CEREBRAL HAEMATOMA [None]
  - CONVULSION [None]
  - CREATININE RENAL CLEARANCE DECREASED [None]
  - DISORIENTATION [None]
  - DYSKINESIA [None]
  - EPILEPSY [None]
  - FALL [None]
  - GENERAL PHYSICAL HEALTH DETERIORATION [None]
  - HEAD INJURY [None]
  - HYPERTENSION [None]
  - HYPOKALAEMIA [None]
  - HYPONATRAEMIA [None]
  - INAPPROPRIATE ANTIDIURETIC HORMONE SECRETION [None]
  - LOSS OF CONSCIOUSNESS [None]
  - MALAISE [None]
  - NAUSEA [None]
  - PSYCHOMOTOR RETARDATION [None]
  - SKIN INJURY [None]
  - TONGUE BITING [None]
  - WOUND [None]
